FAERS Safety Report 8559307-9 (Version None)
Quarter: 2012Q3

REPORT INFORMATION
  Report Type: 
  Country: None (occurrence: None)
  Receive Date: 20120802
  Receipt Date: 20120730
  Transmission Date: 20120928
  Serious: Yes (Death, Hospitalization)
  Sender: FDA-Public Use
  Company Number: PHHY2012BR066044

PATIENT
  Sex: Female
  Weight: 70 kg

DRUGS (5)
  1. PROLOPA [Concomitant]
     Indication: PARKINSON'S DISEASE
     Dosage: 0.25 DF (200/50 MG), TID
     Route: 048
  2. EXELON [Suspect]
     Indication: DEMENTIA ALZHEIMER'S TYPE
     Dosage: 4.6 MG, QD (9MG/5CM2\ 24 HRS)
     Route: 062
     Dates: start: 20100101
  3. EXELON [Suspect]
     Dosage: 13.3 MG, QD (27MG/15CM2/ 24 HRS)
     Route: 062
  4. MEMANTINE HYDROCHLORIDE (ALOIS) [Concomitant]
     Indication: DEMENTIA ALZHEIMER'S TYPE
     Dosage: 20 MG, DAILY
     Route: 048
  5. EXELON [Suspect]
     Dosage: 9.5 MG, QD (18MG/10CM2\ 24 HRS)
     Route: 062

REACTIONS (6)
  - SEPTIC SHOCK [None]
  - PNEUMONIA [None]
  - DEHYDRATION [None]
  - URINARY TRACT INFECTION [None]
  - DYSPHAGIA [None]
  - BRONCHOPNEUMOPATHY [None]
